FAERS Safety Report 11931298 (Version 1)
Quarter: 2016Q1

REPORT INFORMATION
  Report Type: Spontaneous
  Country: US (occurrence: US)
  Receive Date: 20160120
  Receipt Date: 20160120
  Transmission Date: 20160526
  Serious: No
  Sender: FDA-Public Use
  Company Number: US-INCYTE CORPORATION-2015IN004340

PATIENT
  Sex: Male

DRUGS (6)
  1. SUCRALFATE. [Concomitant]
     Active Substance: SUCRALFATE
  2. DIOVAN [Concomitant]
     Active Substance: VALSARTAN
  3. CHLORTHALIDONE. [Concomitant]
     Active Substance: CHLORTHALIDONE
  4. COLCRYS [Concomitant]
     Active Substance: COLCHICINE
  5. MELATONIN [Concomitant]
     Active Substance: MELATONIN
  6. JAKAFI [Suspect]
     Active Substance: RUXOLITINIB
     Dosage: 5 MG, BID
     Route: 048
     Dates: start: 20150402

REACTIONS (1)
  - Nephrolithiasis [Unknown]
